FAERS Safety Report 10059321 (Version 4)
Quarter: 2015Q2

REPORT INFORMATION
  Report Type: Spontaneous
  Country: US (occurrence: US)
  Receive Date: 20140404
  Receipt Date: 20150417
  Transmission Date: 20150821
  Serious: Yes (Hospitalization)
  Sender: FDA-Public Use
  Company Number: US-BAYER-2014-049382

PATIENT
  Age: 25 Year
  Sex: Female
  Weight: 47.62 kg

DRUGS (2)
  1. CITALOPRAM HYDROBROMIDE. [Concomitant]
     Active Substance: CITALOPRAM HYDROBROMIDE
     Dosage: 10 MG, UNK
  2. MIRENA [Suspect]
     Active Substance: LEVONORGESTREL
     Indication: CONTRACEPTION
     Dosage: 20 MCG/24HR, CONT
     Route: 015
     Dates: start: 20120830, end: 20130702

REACTIONS (13)
  - Uterine perforation [None]
  - Vaginal haemorrhage [None]
  - Device issue [None]
  - Anxiety [None]
  - Injury [None]
  - Procedural pain [None]
  - Uterine scar [None]
  - Depression [None]
  - Abdominal pain [None]
  - Device defective [None]
  - Menstruation irregular [None]
  - Device dislocation [None]
  - Device difficult to use [None]

NARRATIVE: CASE EVENT DATE: 201208
